FAERS Safety Report 25745489 (Version 1)
Quarter: 2025Q3

REPORT INFORMATION
  Report Type: Spontaneous
  Country: AU (occurrence: AU)
  Receive Date: 20250901
  Receipt Date: 20250901
  Transmission Date: 20251021
  Serious: Yes (Other)
  Sender: AUROBINDO
  Company Number: None

PATIENT
  Sex: Female

DRUGS (4)
  1. PRALATREXATE [Suspect]
     Active Substance: PRALATREXATE
     Indication: T-cell lymphoma
     Route: 065
     Dates: start: 202107
  2. CYCLOPHOSPHAMIDE [Suspect]
     Active Substance: CYCLOPHOSPHAMIDE
     Indication: T-cell lymphoma
     Route: 065
     Dates: start: 202204
  3. CYTARABINE [Suspect]
     Active Substance: CYTARABINE
     Indication: T-cell lymphoma
     Route: 065
     Dates: start: 202204
  4. DEXAMETHASONE [Suspect]
     Active Substance: DEXAMETHASONE
     Indication: T-cell lymphoma
     Route: 065
     Dates: start: 202204

REACTIONS (9)
  - Panniculitis [Unknown]
  - T-cell lymphoma [Unknown]
  - Thrombocytopenia [Unknown]
  - Leukaemia [Unknown]
  - Disease recurrence [Unknown]
  - Anaemia [Unknown]
  - Drug intolerance [Unknown]
  - Dyspnoea [Unknown]
  - Pyrexia [Unknown]
